FAERS Safety Report 6007520-7 (Version None)
Quarter: 2008Q4

REPORT INFORMATION
  Report Type: 
  Country: None (occurrence: None)
  Receive Date: 20081217
  Receipt Date: 20080505
  Transmission Date: 20090506
  Serious: No
  Sender: FDA-Public Use
  Company Number: US-ASTRAZENECA-2008UW09106

PATIENT
  Age: 61 Year
  Sex: Female
  Weight: 101.2 kg

DRUGS (4)
  1. CRESTOR [Suspect]
     Indication: BLOOD CHOLESTEROL
     Route: 048
     Dates: start: 20070101
  2. POTASSIUM CHLORIDE [Concomitant]
  3. ATENOLOL [Concomitant]
  4. CHLORTHAL [Concomitant]

REACTIONS (2)
  - OEDEMA PERIPHERAL [None]
  - PAIN IN EXTREMITY [None]
